FAERS Safety Report 6860795-4 (Version None)
Quarter: 2010Q3

REPORT INFORMATION
  Report Type: 
  Country: None (occurrence: None)
  Receive Date: 20100719
  Receipt Date: 20100719
  Transmission Date: 20110219
  Serious: Yes (Hospitalization)
  Sender: FDA-Public Use
  Company Number: None

PATIENT
  Age: 68 Year
  Sex: Male
  Weight: 82.5547 kg

DRUGS (2)
  1. CEFDINIR [Suspect]
     Indication: EAR PAIN
     Dosage: 3 XDAY
     Dates: start: 20100513, end: 20100517
  2. CEFDINIR [Suspect]
     Indication: NASOPHARYNGITIS
     Dosage: 3 XDAY
     Dates: start: 20100513, end: 20100517

REACTIONS (2)
  - CLOSTRIDIAL INFECTION [None]
  - NO THERAPEUTIC RESPONSE [None]
